FAERS Safety Report 9195937 (Version 1)
Quarter: 2013Q1

REPORT INFORMATION
  Report Type: Spontaneous
  Country: US (occurrence: None)
  Receive Date: 20120705
  Receipt Date: 20120705
  Transmission Date: 20140127
  Serious: Yes (Hospitalization)
  Sender: FDA-Public Use
  Company Number: US-CYPR-2012-000041

PATIENT
  Age: 66 Year
  Sex: Male

DRUGS (3)
  1. CLOPIDOGREL [Suspect]
     Route: 048
     Dates: start: 20110209
  2. ASPIRIN [Suspect]
     Route: 048
     Dates: start: 1995
  3. CYPHER STENT [Concomitant]

REACTIONS (2)
  - Respiratory failure [None]
  - Pneumonia [None]
